FAERS Safety Report 8622867-3 (Version None)
Quarter: 2012Q3

REPORT INFORMATION
  Report Type: 
  Country: None (occurrence: None)
  Receive Date: 20120827
  Receipt Date: 20120821
  Transmission Date: 20120928
  Serious: Yes (Other)
  Sender: FDA-Public Use
  Company Number: PHHY2012CA045629

PATIENT
  Sex: Female

DRUGS (10)
  1. ZOLEDRONOC ACID [Suspect]
     Indication: OSTEOPOROSIS
     Route: 042
     Dates: start: 20101001
  2. PANTOPRAZOLE SODIUM [Concomitant]
  3. NASACORT [Concomitant]
  4. ZOLEDRONOC ACID [Suspect]
     Route: 042
     Dates: start: 20111021
  5. TRANXENE [Concomitant]
  6. CLONAZEPAM [Concomitant]
  7. PROZAC [Concomitant]
  8. COMPLEX B [Concomitant]
  9. SYNTHROID [Concomitant]
  10. NORTRIPTYLINE [Concomitant]

REACTIONS (7)
  - PALPITATIONS [None]
  - FATIGUE [None]
  - STRESS [None]
  - MYALGIA [None]
  - ANXIETY DISORDER [None]
  - INSOMNIA [None]
  - PAIN IN EXTREMITY [None]
